FAERS Safety Report 6871064-0 (Version None)
Quarter: 2010Q3

REPORT INFORMATION
  Report Type: 
  Country: None (occurrence: None)
  Receive Date: 20100723
  Receipt Date: 20100720
  Transmission Date: 20110219
  Serious: Yes (Death, Other)
  Sender: FDA-Public Use
  Company Number: DE-WYE-G06428010

PATIENT
  Age: 70 Year
  Sex: Female

DRUGS (1)
  1. TORISEL [Suspect]
     Indication: MANTLE CELL LYMPHOMA
     Dosage: INITIALLY 125 MG PER WEEK, ON UNKNOWN DATE REDUCED TO 75 MG PER WEEK
     Route: 042

REACTIONS (3)
  - DISEASE PROGRESSION [None]
  - PNEUMONIA PRIMARY ATYPICAL [None]
  - TUMOUR HAEMORRHAGE [None]
